FAERS Safety Report 24448036 (Version 2)
Quarter: 2025Q1

REPORT INFORMATION
  Report Type: Spontaneous
  Country: JP (occurrence: JP)
  Receive Date: 20241016
  Receipt Date: 20250207
  Transmission Date: 20250409
  Serious: Yes (Hospitalization)
  Sender: EISAI
  Company Number: JP-Eisai-202408799_DVG_P_1

PATIENT
  Age: 33 Year
  Sex: Female
  Weight: 26 kg

DRUGS (20)
  1. DAYVIGO [Suspect]
     Active Substance: LEMBOREXANT
     Indication: Insomnia
     Dosage: A SINGLE DOSE AS NEEDED
     Route: 048
     Dates: start: 20240523, end: 20240523
  2. DAYVIGO [Suspect]
     Active Substance: LEMBOREXANT
     Route: 048
     Dates: start: 20240524, end: 20240526
  3. DAYVIGO [Suspect]
     Active Substance: LEMBOREXANT
     Route: 048
     Dates: start: 20240527, end: 20240527
  4. POTASSIUM ASPARTATE [Concomitant]
     Active Substance: POTASSIUM ASPARTATE
     Indication: Product used for unknown indication
     Route: 048
  5. URALYT URATO [Concomitant]
     Indication: Product used for unknown indication
     Route: 048
  6. GASCONE [Concomitant]
     Indication: Product used for unknown indication
     Route: 048
  7. LANSOPRAZOLO TECNIGEN [Concomitant]
     Indication: Product used for unknown indication
     Route: 048
     Dates: start: 20230614
  8. FLORINEF ACETATE [Concomitant]
     Active Substance: FLUDROCORTISONE ACETATE
     Indication: Product used for unknown indication
     Route: 048
     Dates: start: 20160823
  9. CARBOCYSTEINE [Concomitant]
     Active Substance: CARBOCYSTEINE
     Route: 048
     Dates: start: 20221228
  10. FEXOFENADINE [Concomitant]
     Active Substance: FEXOFENADINE HYDROCHLORIDE
     Indication: Product used for unknown indication
     Route: 048
     Dates: start: 20240319
  11. ESZOPICLONE [Concomitant]
     Active Substance: ESZOPICLONE
     Indication: Product used for unknown indication
     Route: 048
     Dates: start: 20220629
  12. LEVETIRACETAM [Concomitant]
     Active Substance: LEVETIRACETAM
     Indication: Product used for unknown indication
     Route: 048
     Dates: start: 20230608
  13. CLARITHROMYCIN [Concomitant]
     Active Substance: CLARITHROMYCIN
     Route: 048
     Dates: start: 20231121
  14. HERBALS [Concomitant]
     Active Substance: HERBALS
     Indication: Product used for unknown indication
     Route: 048
     Dates: start: 20160815
  15. DEXTROSE [Concomitant]
     Active Substance: DEXTROSE MONOHYDRATE
     Indication: Product used for unknown indication
     Route: 042
  16. PANTOL [PANTOPRAZOLE SODIUM SESQUIHYDRATE] [Concomitant]
     Indication: Product used for unknown indication
     Route: 042
  17. AMINO ACIDS\DEXTROSE\ELECTROLYTES NOS\VITAMINS [Concomitant]
     Active Substance: AMINO ACIDS\DEXTROSE\ELECTROLYTES NOS\VITAMINS
     Indication: Product used for unknown indication
     Route: 042
     Dates: start: 20240525
  18. POTASSIUM ASPARTATE [Concomitant]
     Active Substance: POTASSIUM ASPARTATE
     Indication: Product used for unknown indication
     Route: 042
  19. ACETAMINOPHEN [Concomitant]
     Active Substance: ACETAMINOPHEN
     Indication: Product used for unknown indication
     Route: 042
     Dates: start: 20240522
  20. METOCLOPRAMIDE [Concomitant]
     Active Substance: METOCLOPRAMIDE
     Indication: Product used for unknown indication
     Route: 042
     Dates: start: 20240521

REACTIONS (1)
  - Depressed level of consciousness [Recovering/Resolving]

NARRATIVE: CASE EVENT DATE: 20240528
